FAERS Safety Report 8301504-1 (Version None)
Quarter: 2012Q2

REPORT INFORMATION
  Report Type: 
  Country: None (occurrence: None)
  Receive Date: 20120420
  Receipt Date: 20120417
  Transmission Date: 20120825
  Serious: Yes (Congenital Anomaly)
  Sender: FDA-Public Use
  Company Number: GXKR2012DE001493

PATIENT

DRUGS (2)
  1. LAMOTRGINE [Suspect]
     Dosage: MATERNAL DOSE: 200 MG, DAILY GW 36.4 - 38.3
     Route: 064
     Dates: start: 20090813, end: 20100509
  2. LAMOTRGINE [Suspect]
     Dosage: MATERNAL DOSE: 100 MG, DAILY, GW 0-36.3
     Route: 064

REACTIONS (4)
  - MATERNAL DRUGS AFFECTING FOETUS [None]
  - ATRIAL SEPTAL DEFECT [None]
  - BICUSPID AORTIC VALVE [None]
  - FOETAL EXPOSURE DURING PREGNANCY [None]
